FAERS Safety Report 15270161 (Version 1)
Quarter: 2018Q3

REPORT INFORMATION
  Report Type: Spontaneous
  Country: US (occurrence: US)
  Receive Date: 20180726
  Receipt Date: 20180726
  Transmission Date: 20181010
  Serious: Yes (Other)
  Sender: FDA-Public Use
  Company Number: None

PATIENT
  Age: 91 Year
  Sex: Male
  Weight: 74.25 kg

DRUGS (2)
  1. GENERIC FOR ARICEPT ? DONEPEZIL [Suspect]
     Active Substance: DONEPEZIL HYDROCHLORIDE
     Indication: COGNITIVE DISORDER
     Route: 048
     Dates: start: 20180724, end: 20180726
  2. GENERIC FOR ARICEPT ? DONEPEZIL [Suspect]
     Active Substance: DONEPEZIL HYDROCHLORIDE
     Indication: AMNESIA
     Route: 048
     Dates: start: 20180724, end: 20180726

REACTIONS (4)
  - Fatigue [None]
  - Hallucination [None]
  - Delusional perception [None]
  - Somnolence [None]

NARRATIVE: CASE EVENT DATE: 20180725
